FAERS Safety Report 21543821 (Version 1)
Quarter: 2022Q4

REPORT INFORMATION
  Report Type: Spontaneous
  Country: None (occurrence: US)
  Receive Date: 20221102
  Receipt Date: 20221102
  Transmission Date: 20230113
  Serious: No
  Sender: FDA-Public Use
  Company Number: US-Mikart, LLC-2134432

PATIENT

DRUGS (1)
  1. CARBINOXAMINE MALEATE [Suspect]
     Active Substance: CARBINOXAMINE MALEATE
     Route: 048

REACTIONS (1)
  - Sedation [Unknown]
